FAERS Safety Report 21974632 (Version 1)
Quarter: 2023Q1

REPORT INFORMATION
  Report Type: Spontaneous
  Country: US (occurrence: None)
  Receive Date: 20230208
  Receipt Date: 20230208
  Transmission Date: 20230417
  Serious: Yes (Death)
  Sender: FDA-Public Use
  Company Number: None

PATIENT
  Age: 43 Year
  Sex: Female
  Weight: 63.5 kg

DRUGS (1)
  1. HEPARIN [Suspect]
     Active Substance: HEPARIN SODIUM
     Dates: start: 20221226, end: 20230103

REACTIONS (4)
  - Haemoglobin decreased [None]
  - Pelvic haematoma [None]
  - Cardio-respiratory arrest [None]
  - Pulmonary oedema [None]

NARRATIVE: CASE EVENT DATE: 20230103
